APPROVED DRUG PRODUCT: MINOXIDIL (FOR MEN)
Active Ingredient: MINOXIDIL
Strength: 5%
Dosage Form/Route: AEROSOL, FOAM;TOPICAL
Application: A209074 | Product #001
Applicant: TARO PHARMACEUTICAL INDUSTRIES LTD
Approved: Dec 31, 2018 | RLD: No | RS: No | Type: OTC